FAERS Safety Report 22393879 (Version 2)
Quarter: 2023Q2

REPORT INFORMATION
  Report Type: Spontaneous
  Country: DK (occurrence: DK)
  Receive Date: 20230601
  Receipt Date: 20230606
  Transmission Date: 20230722
  Serious: Yes (Hospitalization, Other)
  Sender: FDA-Public Use
  Company Number: DK-MLMSERVICE-20230519-4289877-1

PATIENT
  Age: 7 Decade
  Sex: Male

DRUGS (1)
  1. METHOTREXATE SODIUM [Suspect]
     Active Substance: METHOTREXATE SODIUM
     Indication: Immunosuppressant drug therapy
     Dosage: UNK

REACTIONS (4)
  - Pneumonia [Recovered/Resolved]
  - Device related infection [Recovered/Resolved]
  - Vertebral column mass [Recovered/Resolved]
  - Atypical mycobacterial infection [Recovered/Resolved]
